FAERS Safety Report 6294437-6 (Version None)
Quarter: 2009Q3

REPORT INFORMATION
  Report Type: 
  Country: None (occurrence: None)
  Receive Date: 20090803
  Receipt Date: 20090723
  Transmission Date: 20100115
  Serious: Yes (Hospitalization)
  Sender: FDA-Public Use
  Company Number: US-ROCHE-646015

PATIENT
  Age: 87 Year
  Sex: Female

DRUGS (5)
  1. BONIVA [Suspect]
     Indication: OSTEOPOROSIS
     Route: 048
     Dates: start: 20090201
  2. DIAZEPAM [Concomitant]
     Dosage: INDICATION: WHEN NEEDED FOR NERVES.
  3. LOPRESSOR [Concomitant]
  4. PROTONIX [Concomitant]
     Dosage: FOR HIATAL HERNIA ATLEAST A YEAR.
  5. ARICEPT [Concomitant]

REACTIONS (2)
  - FALL [None]
  - HIP FRACTURE [None]
